FAERS Safety Report 9794558 (Version 4)
Quarter: 2014Q1

REPORT INFORMATION
  Report Type: Spontaneous
  Country: US (occurrence: US)
  Receive Date: 20140102
  Receipt Date: 20140331
  Transmission Date: 20141002
  Serious: Yes (Hospitalization, Other)
  Sender: FDA-Public Use
  Company Number: US-TEVA-453669USA

PATIENT
  Age: 64 Year
  Sex: Female

DRUGS (4)
  1. DILTIAZEM [Suspect]
     Dosage: TOOK 2 TABLETS (30 MG EACH) AT 1:00 PM
     Route: 048
     Dates: start: 20131221
  2. DILTIAZEM [Interacting]
     Dosage: TOOK 2 TABLETS (30 MG EACH) AT 5:00 PM
     Route: 048
     Dates: start: 20131221
  3. DILTIAZEM ER [Suspect]
     Dosage: 120 MILLIGRAM DAILY;
  4. SHAKLEE OSTEOMATRIX [Interacting]
     Dosage: 4 CAPSULES

REACTIONS (5)
  - Blood pressure increased [Recovered/Resolved]
  - Heart rate increased [Recovered/Resolved]
  - Drug interaction [Recovered/Resolved]
  - Dizziness [Recovered/Resolved]
  - Drug effect decreased [Unknown]
